FAERS Safety Report 9377797 (Version 1)
Quarter: 2013Q3

REPORT INFORMATION
  Report Type: Spontaneous
  Country: US (occurrence: US)
  Receive Date: 20130701
  Receipt Date: 20130701
  Transmission Date: 20140515
  Serious: Yes (Other)
  Sender: FDA-Public Use
  Company Number: US-GLAXOSMITHKLINE-A1003558A

PATIENT
  Age: 13 Year
  Sex: Female

DRUGS (2)
  1. IMITREX [Suspect]
     Indication: MIGRAINE
     Dosage: 50MG AS REQUIRED
     Route: 048
     Dates: end: 20121129
  2. NAPROXEN [Concomitant]

REACTIONS (3)
  - Deafness [Unknown]
  - Paraesthesia [Unknown]
  - Off label use [Unknown]
